FAERS Safety Report 4678583-6 (Version None)
Quarter: 2005Q2

REPORT INFORMATION
  Report Type: 
  Country: None (occurrence: None)
  Receive Date: 20050601
  Receipt Date: 20050526
  Transmission Date: 20051028
  Serious: Yes (Disabling)
  Sender: FDA-Public Use
  Company Number: US-MERCK-0505USA03157

PATIENT
  Age: 78 Year
  Sex: Female

DRUGS (10)
  1. VERAPAMIL [Concomitant]
     Route: 065
  2. DIGOXIN [Concomitant]
     Route: 065
  3. HYDROCHLOROTHIAZIDE [Concomitant]
     Route: 065
  4. PHENOBARBITAL [Concomitant]
     Route: 065
  5. ASPIRIN [Concomitant]
     Route: 065
  6. ASPIRIN [Concomitant]
     Route: 065
  7. VYTORIN [Suspect]
     Indication: HYPERLIPIDAEMIA
     Route: 048
     Dates: start: 20050401, end: 20050525
  8. AVAPRO [Concomitant]
     Route: 065
  9. GLUCOPHAGE [Concomitant]
     Route: 065
  10. ATENOLOL [Concomitant]
     Route: 065

REACTIONS (2)
  - BUTTOCK PAIN [None]
  - DIFFICULTY IN WALKING [None]
